FAERS Safety Report 21633535 (Version 1)
Quarter: 2022Q4

REPORT INFORMATION
  Report Type: Spontaneous
  Country: US (occurrence: US)
  Receive Date: 20221123
  Receipt Date: 20221123
  Transmission Date: 20230113
  Serious: No
  Sender: FDA-Public Use
  Company Number: US-PFIZER INC-PV202200108723

PATIENT

DRUGS (1)
  1. VYNDAMAX [Suspect]
     Active Substance: TAFAMIDIS
     Dosage: UNK

REACTIONS (7)
  - Cough [Unknown]
  - Dysphagia [Unknown]
  - Pruritus [Unknown]
  - Asthenia [Unknown]
  - Back pain [Unknown]
  - Arthropathy [Unknown]
  - Balance disorder [Unknown]
